FAERS Safety Report 6329294-2 (Version None)
Quarter: 2009Q3

REPORT INFORMATION
  Report Type: 
  Country: None (occurrence: None)
  Receive Date: 20090825
  Receipt Date: 20090825
  Transmission Date: 20100115
  Serious: Yes (Other)
  Sender: FDA-Public Use
  Company Number: None

PATIENT
  Age: 35 Year
  Sex: Female
  Weight: 74.8435 kg

DRUGS (1)
  1. LYRICA [Suspect]
     Indication: FIBROMYALGIA
     Dosage: 150 MG. 2 X A DAY PO
     Route: 048
     Dates: start: 20070615, end: 20090805

REACTIONS (2)
  - PHOTOSENSITIVITY REACTION [None]
  - SWELLING FACE [None]
